FAERS Safety Report 17040008 (Version 1)
Quarter: 2019Q4

REPORT INFORMATION
  Report Type: Report from Study
  Country: None (occurrence: US)
  Receive Date: 20191116
  Receipt Date: 20191116
  Transmission Date: 20200122
  Serious: Yes (Other)
  Sender: FDA-Public Use
  Company Number: US-ABBVIE-19K-163-2914141-00

PATIENT
  Sex: Female

DRUGS (2)
  1. HUMIRA [Suspect]
     Active Substance: ADALIMUMAB
     Indication: RHEUMATOID ARTHRITIS
     Route: 058
     Dates: start: 20190206, end: 2019
  2. HUMIRA [Suspect]
     Active Substance: ADALIMUMAB
     Route: 058
     Dates: start: 20190731, end: 20190925

REACTIONS (18)
  - Chondropathy [Unknown]
  - Loss of personal independence in daily activities [Not Recovered/Not Resolved]
  - Neck pain [Unknown]
  - Dyspnoea [Unknown]
  - Chest discomfort [Unknown]
  - Joint range of motion decreased [Unknown]
  - Swelling [Unknown]
  - Peripheral swelling [Not Recovered/Not Resolved]
  - Fatigue [Unknown]
  - Anxiety [Not Recovered/Not Resolved]
  - Musculoskeletal stiffness [Unknown]
  - Pain in extremity [Unknown]
  - Injection site haemorrhage [Unknown]
  - Rash erythematous [Unknown]
  - Contusion [Unknown]
  - Rash pruritic [Unknown]
  - Inflammation [Not Recovered/Not Resolved]
  - Arthralgia [Not Recovered/Not Resolved]

NARRATIVE: CASE EVENT DATE: 2019
